FAERS Safety Report 7810376 (Version 2)
Quarter: 2018Q4

REPORT INFORMATION
  Report Type: Spontaneous
  Country: FR (occurrence: FR)
  Receive Date: 20110214
  Receipt Date: 20181008
  Transmission Date: 20190205
  Serious: Yes (Other)
  Sender: FDA-Public Use
  Company Number: FR-AMGEN-FRASP2011007658

PATIENT
  Age: 49 Year
  Sex: Male
  Weight: 100 kg

DRUGS (1)
  1. ENBREL [Suspect]
     Active Substance: ETANERCEPT
     Indication: ANKYLOSING SPONDYLITIS
     Dosage: UNK
     Route: 058
     Dates: end: 20101107

REACTIONS (2)
  - Diarrhoea [Recovered/Resolved]
  - Colitis microscopic [Recovered/Resolved]

NARRATIVE: CASE EVENT DATE: 20100826
